FAERS Safety Report 6492360-5 (Version None)
Quarter: 2009Q4

REPORT INFORMATION
  Report Type: 
  Country: None (occurrence: None)
  Receive Date: 20091214
  Receipt Date: 20091207
  Transmission Date: 20100525
  Serious: Yes (Death, Hospitalization)
  Sender: FDA-Public Use
  Company Number: IT-ELI_LILLY_AND_COMPANY-IT200910000033

PATIENT
  Sex: Male
  Weight: 81 kg

DRUGS (9)
  1. PEMETREXED [Suspect]
     Indication: NON-SMALL CELL LUNG CANCER
     Dosage: 500 MG/M2, DAY 1 EVERY 21 DAYS
     Route: 042
     Dates: start: 20090819, end: 20091019
  2. CISPLATIN [Suspect]
     Indication: NON-SMALL CELL LUNG CANCER
     Dosage: 75 MG/M2, DAY ONE EVERY 21 DAYS
     Route: 042
     Dates: start: 20090819, end: 20091019
  3. FOLIC ACID [Concomitant]
     Indication: PROPHYLAXIS
     Dosage: UNK, UNK
     Dates: start: 20090812, end: 20090930
  4. VITAMIN B-12 [Concomitant]
     Indication: PROPHYLAXIS
     Dosage: UNK, UNK
     Dates: start: 20090812, end: 20090930
  5. DEXAMETHASONE TAB [Concomitant]
     Indication: PROPHYLAXIS
     Dosage: UNK, UNK
     Dates: start: 20090819, end: 20090930
  6. DELTACORTENE [Concomitant]
     Indication: PAIN
     Dosage: UNK, UNK
     Dates: start: 20090811, end: 20091008
  7. LYRICA [Concomitant]
     Indication: PAIN
     Dosage: UNK, UNK
     Dates: start: 20090811, end: 20091018
  8. OXYCONTIN [Concomitant]
     Indication: PAIN
     Dosage: UNK, UNK
     Dates: start: 20090811, end: 20091018
  9. LANSOPRAZOLO [Concomitant]
     Indication: PROPHYLAXIS
     Dosage: UNK, UNK
     Dates: start: 20090811, end: 20091018

REACTIONS (2)
  - MALIGNANT NEOPLASM PROGRESSION [None]
  - PULMONARY EMBOLISM [None]
